FAERS Safety Report 4677768-2 (Version None)
Quarter: 2005Q2

REPORT INFORMATION
  Report Type: 
  Country: None (occurrence: None)
  Receive Date: 20050527
  Receipt Date: 20050520
  Transmission Date: 20051028
  Serious: Yes (Other)
  Sender: FDA-Public Use
  Company Number: KII-2005-0016671

PATIENT
  Age: 16 Year
  Sex: Male

DRUGS (2)
  1. OXYCONTIN [Suspect]
     Indication: DRUG USE FOR UNKNOWN INDICATION
     Dosage: INHALATION
     Route: 055
  2. ETHANOL (ETHANOL) [Suspect]
     Indication: DRUG USE FOR UNKNOWN INDICATION

REACTIONS (5)
  - CYANOSIS [None]
  - INTENTIONAL MISUSE [None]
  - POLYSUBSTANCE ABUSE [None]
  - RESPIRATORY DEPRESSION [None]
  - WHITE BLOOD CELL COUNT INCREASED [None]
